FAERS Safety Report 16715902 (Version 1)
Quarter: 2019Q4

REPORT INFORMATION
  Report Type: Spontaneous
  Country: DK (occurrence: DK)
  Receive Date: 20190817
  Receipt Date: 20190817
  Transmission Date: 20200122
  Serious: No
  Sender: FDA-Public Use
  Company Number: None

PATIENT
  Age: 23 Year
  Sex: Female
  Weight: 78 kg

DRUGS (2)
  1. ELOCON [Suspect]
     Active Substance: MOMETASONE FUROATE
     Indication: DERMATITIS ATOPIC
     Route: 061
  2. LOCOID [Suspect]
     Active Substance: HYDROCORTISONE BUTYRATE
     Indication: DERMATITIS ATOPIC
     Route: 061

REACTIONS (6)
  - Skin haemorrhage [None]
  - Pregnancy [None]
  - Exposure during pregnancy [None]
  - Dermatitis atopic [None]
  - Skin atrophy [None]
  - Haemorrhagic diathesis [None]

NARRATIVE: CASE EVENT DATE: 20190620
